FAERS Safety Report 9206886 (Version 2)
Quarter: 2013Q4

REPORT INFORMATION
  Report Type: Spontaneous
  Country: GB (occurrence: GB)
  Receive Date: 20130403
  Receipt Date: 20131008
  Transmission Date: 20140711
  Serious: Yes (Hospitalization, Other)
  Sender: FDA-Public Use
  Company Number: GB-B.I. PHARMACEUTICALS,INC./RIDGEFIELD-2013-UK-00833UK

PATIENT
  Age: 8 Decade
  Sex: Female

DRUGS (12)
  1. TELMISARTAN [Suspect]
     Dosage: 80 MG
  2. TELMISARTAN [Suspect]
     Dosage: 2 MG
     Dates: start: 200710
  3. AMLODIPINE [Suspect]
     Dosage: 5 MG
  4. ASPIRIN [Suspect]
     Dosage: 75 MG
  5. BISOPROLOL [Suspect]
     Dosage: 5 MG
  6. CITALOPRAM [Suspect]
     Indication: DEPRESSION
     Dosage: 20 MG
     Dates: start: 201207
  7. DOXAZOSIN MESILATE [Suspect]
     Dosage: 8 MG
  8. DOXAZOSIN MESILATE [Suspect]
     Dosage: 1 MG
     Dates: start: 200710
  9. FUROSEMIDE [Suspect]
     Dosage: 80 MG
  10. ATENOLOL [Suspect]
     Indication: HYPERTENSION
     Dosage: 25 MG
     Dates: start: 201209
  11. ATENOLOL [Suspect]
     Dosage: 50 MG
  12. ANTIBIOTICS NOS [Concomitant]

REACTIONS (7)
  - Dyspnoea [Unknown]
  - Fluid overload [Unknown]
  - Blood cholesterol increased [Unknown]
  - Weight loss poor [Unknown]
  - Low density lipoprotein increased [Unknown]
  - Pulmonary congestion [Unknown]
  - Oedema [Unknown]
